APPROVED DRUG PRODUCT: CLEOCIN T
Active Ingredient: CLINDAMYCIN PHOSPHATE
Strength: EQ 1% BASE
Dosage Form/Route: LOTION;TOPICAL
Application: N050600 | Product #001 | TE Code: AB
Applicant: PFIZER INC
Approved: May 31, 1989 | RLD: Yes | RS: Yes | Type: RX